FAERS Safety Report 19717806 (Version 1)
Quarter: 2021Q3

REPORT INFORMATION
  Report Type: Spontaneous
  Country: US (occurrence: US)
  Receive Date: 20210818
  Receipt Date: 20210818
  Transmission Date: 20211014
  Serious: No
  Sender: FDA-Public Use
  Company Number: US-AMGEN-USASP2021124562

PATIENT
  Age: 71 Year
  Sex: Female

DRUGS (1)
  1. XGEVA [Suspect]
     Active Substance: DENOSUMAB
     Indication: HYPERCALCAEMIA
     Dosage: 120 MILLIGRAM
     Route: 065
     Dates: start: 20200305

REACTIONS (2)
  - Off label use [Unknown]
  - Dental care [Unknown]

NARRATIVE: CASE EVENT DATE: 20200305
